FAERS Safety Report 23947950 (Version 1)
Quarter: 2024Q2

REPORT INFORMATION
  Report Type: Spontaneous
  Country: BR (occurrence: BR)
  Receive Date: 20240606
  Receipt Date: 20240606
  Transmission Date: 20240716
  Serious: Yes (Other)
  Sender: FDA-Public Use
  Company Number: BR-ABBVIE-5786106

PATIENT
  Age: 66 Year
  Sex: Female

DRUGS (1)
  1. CARBOXYMETHYLCELLULOSE SODIUM\GLYCERIN [Suspect]
     Active Substance: CARBOXYMETHYLCELLULOSE SODIUM\GLYCERIN
     Indication: Eye lubrication therapy
     Dosage: STRENGTH: CMC 5MG/ML, GLYCERIN 9MG/ML
     Route: 047
     Dates: start: 2021, end: 202307

REACTIONS (3)
  - Eye complication associated with device [Recovered/Resolved]
  - Poor quality product administered [Unknown]
  - Product odour abnormal [Recovered/Resolved]

NARRATIVE: CASE EVENT DATE: 20230701
